FAERS Safety Report 8326793-9 (Version None)
Quarter: 2012Q2

REPORT INFORMATION
  Report Type: 
  Country: None (occurrence: None)
  Receive Date: 20120501
  Receipt Date: 20120426
  Transmission Date: 20120825
  Serious: Yes (Other)
  Sender: FDA-Public Use
  Company Number: US-PFIZER INC-2012080391

PATIENT
  Sex: Female
  Weight: 116 kg

DRUGS (3)
  1. CELEBREX [Concomitant]
     Dosage: UNK
  2. ESOMEPRAZOLE MAGNESIUM/NAPROXEN [Concomitant]
     Dosage: UNK
  3. LYRICA [Suspect]
     Indication: FIBROMYALGIA
     Dosage: 300 MG, 2X/DAY
     Route: 048

REACTIONS (7)
  - FIBROMYALGIA [None]
  - SKIN DISORDER [None]
  - SWELLING FACE [None]
  - JOINT INJURY [None]
  - FEELING ABNORMAL [None]
  - INFLUENZA LIKE ILLNESS [None]
  - HYPERHIDROSIS [None]
